FAERS Safety Report 6902055-9 (Version None)
Quarter: 2010Q3

REPORT INFORMATION
  Report Type: 
  Country: None (occurrence: None)
  Receive Date: 20100803
  Receipt Date: 20080408
  Transmission Date: 20110219
  Serious: No
  Sender: FDA-Public Use
  Company Number: US-PFIZER INC-2008028424

PATIENT
  Sex: Female
  Weight: 77.1 kg

DRUGS (8)
  1. LYRICA [Suspect]
     Dates: start: 20070901
  2. PROPACET 100 [Concomitant]
  3. ZETIA [Concomitant]
  4. REQUIP [Concomitant]
  5. BALSALAZIDE [Concomitant]
  6. WELCHOL [Concomitant]
  7. PREDNISONE [Concomitant]
  8. LANTUS [Concomitant]

REACTIONS (2)
  - DRUG INEFFECTIVE [None]
  - WEIGHT INCREASED [None]
